FAERS Safety Report 25940940 (Version 2)
Quarter: 2025Q4

REPORT INFORMATION
  Report Type: Spontaneous
  Country: EU (occurrence: EU)
  Receive Date: 20251020
  Receipt Date: 20251027
  Transmission Date: 20260119
  Serious: Yes (Other)
  Sender: PFIZER
  Company Number: EU-AMEDGMBH-39

PATIENT
  Age: 29 Year
  Sex: Female

DRUGS (14)
  1. PANTOPRAZOLE [Suspect]
     Active Substance: PANTOPRAZOLE
     Dosage: 1 DOSAGE FORM, QD
  2. LORAZEPAM [Suspect]
     Active Substance: LORAZEPAM
     Dosage: 1 DOSAGE FORM, BID
  3. LORAZEPAM [Suspect]
     Active Substance: LORAZEPAM
     Dosage: 1 DOSAGE FORM
  4. FLUOXETINE HYDROCHLORIDE [Suspect]
     Active Substance: FLUOXETINE HYDROCHLORIDE
     Dosage: 3 DOSAGE FORM, QD
  5. TRAZODONE [Suspect]
     Active Substance: TRAZODONE HYDROCHLORIDE
     Dosage: 2 DOSAGE FORM, QD
  6. TRAZODONE [Suspect]
     Active Substance: TRAZODONE HYDROCHLORIDE
     Dosage: UNK
     Route: 065
  7. ARIPIPRAZOLE [Suspect]
     Active Substance: ARIPIPRAZOLE
     Dosage: 1 DOSAGE FORM, QD
  8. PROTHIPENDYL [Suspect]
     Active Substance: PROTHIPENDYL
     Dosage: 2 DOSAGE FORM, QD
  9. ZOLPIDEM [Suspect]
     Active Substance: ZOLPIDEM TARTRATE
     Dosage: 1 DOSAGE FORM, QD
  10. ZUCLOPENTHIXOL [Suspect]
     Active Substance: ZUCLOPENTHIXOL
     Dosage: 1 DOSAGE FORM, BID
  11. MAGNESIUM [Suspect]
     Active Substance: MAGNESIUM
     Dosage: 1 DOSAGE FORM, QD
  12. POLYETHYLENE GLYCOLS [Suspect]
     Active Substance: POLYETHYLENE GLYCOLS
     Dosage: UNK, 1X/DAY
  13. LEVOMEPROMAZINE [Suspect]
     Active Substance: LEVOMEPROMAZINE
     Indication: Suicidal ideation
     Dosage: 1 DOSAGE FORM, BID
  14. LEVOMEPROMAZINE [Suspect]
     Active Substance: LEVOMEPROMAZINE
     Indication: Self-injurious ideation
     Dosage: UNK

REACTIONS (1)
  - Electrocardiogram QT prolonged [Recovered/Resolved]
